FAERS Safety Report 7292862-8 (Version None)
Quarter: 2011Q1

REPORT INFORMATION
  Report Type: 
  Country: None (occurrence: None)
  Receive Date: 20110203
  Receipt Date: 20110119
  Transmission Date: 20110831
  Serious: Yes (Hospitalization)
  Sender: FDA-Public Use
  Company Number: 007129

PATIENT
  Sex: Male

DRUGS (8)
  1. CIMZIA [Suspect]
     Indication: CROHN'S DISEASE
     Dosage: SUBCUTANEOUS
     Route: 058
     Dates: start: 20090610
  2. ENTOCORT EC [Concomitant]
  3. OMEPRAZOLE [Concomitant]
  4. IMURAN [Concomitant]
  5. FENTANYL [Concomitant]
  6. CITALOPRAM HYDROBROMIDE [Concomitant]
  7. REGLAN [Concomitant]
  8. OXYCODONE [Concomitant]

REACTIONS (10)
  - PULMONARY EMBOLISM [None]
  - SLEEP DISORDER [None]
  - PULMONARY INFARCTION [None]
  - PAIN [None]
  - GASTROINTESTINAL HYPOMOTILITY [None]
  - GASTRIC ULCER HAEMORRHAGE [None]
  - NASOPHARYNGITIS [None]
  - INTERNATIONAL NORMALISED RATIO INCREASED [None]
  - INFECTION [None]
  - INTESTINAL OBSTRUCTION [None]
